FAERS Safety Report 7664730-0 (Version None)
Quarter: 2011Q3

REPORT INFORMATION
  Report Type: 
  Country: None (occurrence: None)
  Receive Date: 20110806
  Receipt Date: 20110119
  Transmission Date: 20111222
  Serious: No
  Sender: FDA-Public Use
  Company Number: US-ABBOTT-11P-163-0700324-00

PATIENT
  Age: 67 Year
  Sex: Female
  Weight: 80.358 kg

DRUGS (8)
  1. NIASPAN [Suspect]
     Indication: HIGH DENSITY LIPOPROTEIN ABNORMAL
     Route: 048
     Dates: start: 20100801, end: 20101101
  2. TOPAMAX [Concomitant]
     Indication: MIGRAINE
  3. TARKA [Concomitant]
     Indication: HYPERTENSION
  4. UNKNOWN LOTION [Suspect]
     Indication: PRURITUS
     Dates: start: 20110116, end: 20110116
  5. NIASPAN [Suspect]
     Indication: BLOOD TRIGLYCERIDES INCREASED
     Route: 048
     Dates: start: 20110118
  6. NIASPAN [Suspect]
     Indication: BLOOD CHOLESTEROL INCREASED
     Dosage: 2 PILLS DAILY
     Route: 048
     Dates: start: 20101101, end: 20110118
  7. SIMVASTATIN [Concomitant]
     Indication: BLOOD CHOLESTEROL INCREASED
  8. TOPAMAX [Concomitant]
     Indication: CONVULSION PROPHYLAXIS

REACTIONS (4)
  - PRURITUS [None]
  - SKIN BURNING SENSATION [None]
  - PARAESTHESIA [None]
  - ERYTHEMA [None]
